FAERS Safety Report 15658750 (Version 2)
Quarter: 2018Q4

REPORT INFORMATION
  Report Type: Spontaneous
  Country: US (occurrence: US)
  Receive Date: 20181126
  Receipt Date: 20181204
  Transmission Date: 20190205
  Serious: Yes (Hospitalization, Other)
  Sender: FDA-Public Use
  Company Number: US-AMGEN-USASP2018164755

PATIENT
  Age: 81 Year
  Sex: Male

DRUGS (2)
  1. IMLYGIC [Suspect]
     Active Substance: TALIMOGENE LAHERPAREPVEC
     Indication: METASTATIC MALIGNANT MELANOMA
     Dosage: UNK (1.7 ML OF 1 MILLION PLAQUE-FORMING-UNITS/ML)
     Route: 026
  2. NIVOLUMAB [Concomitant]
     Active Substance: NIVOLUMAB
     Indication: MALIGNANT MELANOMA
     Dosage: UNK

REACTIONS (8)
  - Kaposi^s varicelliform eruption [Recovered/Resolved]
  - Malignant melanoma [Not Recovered/Not Resolved]
  - Off label use [Unknown]
  - Anaplastic large cell lymphoma T- and null-cell types [Not Recovered/Not Resolved]
  - Pyrexia [Recovered/Resolved]
  - Leukocytosis [Recovered/Resolved]
  - Fatigue [Recovered/Resolved]
  - Performance status decreased [Not Recovered/Not Resolved]
